FAERS Safety Report 21499110 (Version 8)
Quarter: 2023Q2

REPORT INFORMATION
  Report Type: Report from Study
  Country: CA (occurrence: CA)
  Receive Date: 20221024
  Receipt Date: 20230404
  Transmission Date: 20230722
  Serious: Yes (Hospitalization)
  Sender: FDA-Public Use
  Company Number: CA-NOVARTISPH-NVSC2020CA287676

PATIENT
  Age: 56 Year
  Sex: Male

DRUGS (2)
  1. MAYZENT [Suspect]
     Active Substance: SIPONIMOD
     Indication: Secondary progressive multiple sclerosis
     Dosage: 1 MG
     Route: 048
     Dates: start: 20201021
  2. MAYZENT [Suspect]
     Active Substance: SIPONIMOD
     Dosage: UNK
     Route: 048
     Dates: start: 20221111

REACTIONS (13)
  - Fall [Unknown]
  - Somnolence [Unknown]
  - COVID-19 [Unknown]
  - Balance disorder [Unknown]
  - Memory impairment [Unknown]
  - Muscular weakness [Unknown]
  - Gait disturbance [Unknown]
  - Oral infection [Unknown]
  - Oral pain [Unknown]
  - Depression [Recovering/Resolving]
  - Headache [Recovered/Resolved]
  - Hypertension [Unknown]
  - Asthenia [Unknown]

NARRATIVE: CASE EVENT DATE: 20201022
